FAERS Safety Report 5261826-8 (Version None)
Quarter: 2007Q1

REPORT INFORMATION
  Report Type: 
  Country: None (occurrence: None)
  Receive Date: 20070310
  Receipt Date: 20070228
  Transmission Date: 20070707
  Serious: Yes (Hospitalization, Other)
  Sender: FDA-Public Use
  Company Number: PHBS2007BR03894

PATIENT
  Age: 47 Year
  Sex: Female
  Weight: 58 kg

DRUGS (1)
  1. CODATEN [Suspect]
     Indication: PAIN
     Dosage: UNK, TID
     Route: 048
     Dates: start: 20061128, end: 20061128

REACTIONS (5)
  - BLOOD PRESSURE DECREASED [None]
  - DYSPNOEA [None]
  - FEELING ABNORMAL [None]
  - PRESYNCOPE [None]
  - TACHYCARDIA [None]
